FAERS Safety Report 14248635 (Version 1)
Quarter: 2017Q4

REPORT INFORMATION
  Report Type: Spontaneous
  Country: US (occurrence: US)
  Receive Date: 20171203
  Receipt Date: 20171203
  Transmission Date: 20180321
  Serious: No
  Sender: FDA-Public Use
  Company Number: None

PATIENT
  Age: 48 Year
  Sex: Female
  Weight: 59.4 kg

DRUGS (14)
  1. ATAMOXITINE [Concomitant]
  2. VITAMIN E [Concomitant]
     Active Substance: .ALPHA.-TOCOPHEROL
  3. MELATONIN [Concomitant]
     Active Substance: MELATONIN
  4. ABILIFY [Concomitant]
     Active Substance: ARIPIPRAZOLE
  5. BIRTH CONTROL PILLS [Concomitant]
     Active Substance: UNSPECIFIED INGREDIENT
  6. CALCIUM [Concomitant]
     Active Substance: CALCIUM
  7. TRAZODONE [Concomitant]
     Active Substance: TRAZODONE HYDROCHLORIDE
  8. PROPRANOLOL [Concomitant]
     Active Substance: PROPRANOLOL HYDROCHLORIDE
  9. STOOL SOFTNERS [Concomitant]
  10. LEXAPRO [Concomitant]
     Active Substance: ESCITALOPRAM OXALATE
  11. BIOTIN [Concomitant]
     Active Substance: BIOTIN
  12. DOXEPIN [Concomitant]
     Active Substance: DOXEPIN
  13. VITAMIN C [Concomitant]
     Active Substance: ASCORBIC ACID
  14. CYMBALTA [Suspect]
     Active Substance: DULOXETINE HYDROCHLORIDE
     Indication: MAJOR DEPRESSION
     Dosage: ?          QUANTITY:30 CAPSULE(S);?ORAL
     Route: 048

REACTIONS (4)
  - Inappropriate schedule of drug administration [None]
  - Dizziness [None]
  - Paraesthesia [None]
  - Drug dose omission [None]

NARRATIVE: CASE EVENT DATE: 20080801
